FAERS Safety Report 8032741-1 (Version None)
Quarter: 2011Q4

REPORT INFORMATION
  Report Type: 
  Country: None (occurrence: None)
  Receive Date: 20111202
  Receipt Date: 20091201
  Transmission Date: 20120403
  Serious: Yes (Hospitalization)
  Sender: FDA-Public Use
  Company Number: 2009-195830-NL

PATIENT
  Age: 38 Year
  Sex: Female
  Weight: 74.3899 kg

DRUGS (3)
  1. MULTI-VITAMIN [Concomitant]
  2. CALCIUM [Concomitant]
  3. NUVARING [Suspect]
     Indication: PREGNANCY ON CONTRACEPTIVE
     Dosage: VAG
     Route: 067
     Dates: start: 20070627, end: 20071012

REACTIONS (2)
  - HEADACHE [None]
  - PULMONARY EMBOLISM [None]
